FAERS Safety Report 19428437 (Version 1)
Quarter: 2021Q2

REPORT INFORMATION
  Report Type: Report from Study
  Country: None (occurrence: CA)
  Receive Date: 20210616
  Receipt Date: 20210616
  Transmission Date: 20210717
  Serious: Yes (Hospitalization)
  Sender: FDA-Public Use
  Company Number: CA-ABBVIE-21K-028-3951192-00

PATIENT
  Sex: Female

DRUGS (1)
  1. HUMIRA [Suspect]
     Active Substance: ADALIMUMAB
     Indication: PSORIATIC ARTHROPATHY
     Route: 058
     Dates: start: 20180115, end: 20210526

REACTIONS (6)
  - Gastritis [Recovering/Resolving]
  - Feeding disorder [Recovered/Resolved]
  - Exposure to SARS-CoV-2 [Unknown]
  - Illness [Recovered/Resolved]
  - Psoriasis [Not Recovered/Not Resolved]
  - Polyarthritis [Not Recovered/Not Resolved]

NARRATIVE: CASE EVENT DATE: 2021
